FAERS Safety Report 19993970 (Version 1)
Quarter: 2021Q4

REPORT INFORMATION
  Report Type: Spontaneous
  Country: DE (occurrence: DE)
  Receive Date: 20211025
  Receipt Date: 20211025
  Transmission Date: 20220303
  Serious: Yes (Other)
  Sender: FDA-Public Use
  Company Number: DE-SA-2021SA350198

PATIENT
  Age: 45 Year
  Sex: Female

DRUGS (2)
  1. VANDETANIB [Suspect]
     Active Substance: VANDETANIB
     Indication: Medullary thyroid cancer
     Dosage: 300 MG, QD
     Route: 048
  2. VANDETANIB [Suspect]
     Active Substance: VANDETANIB
     Dosage: 200 MG, QD
     Route: 048

REACTIONS (4)
  - Electrocardiogram QT prolonged [Unknown]
  - Mental disorder [Unknown]
  - Blood calcitonin increased [Unknown]
  - Therapy partial responder [Unknown]
